FAERS Safety Report 5457919-2 (Version None)
Quarter: 2007Q3

REPORT INFORMATION
  Report Type: 
  Country: None (occurrence: None)
  Receive Date: 20070918
  Receipt Date: 20070907
  Transmission Date: 20080115
  Serious: Yes (Hospitalization, Other)
  Sender: FDA-Public Use
  Company Number: HQWYE207517JUL04

PATIENT
  Sex: Female
  Weight: 61.29 kg

DRUGS (2)
  1. PREMPRO [Suspect]
     Indication: MENOPAUSAL SYMPTOMS
     Dosage: UNKNOWN
     Route: 048
  2. PREMARIN [Suspect]
     Indication: MENOPAUSAL SYMPTOMS
     Dosage: UNKNOWN
     Route: 048

REACTIONS (3)
  - BONE NEOPLASM MALIGNANT [None]
  - BREAST CANCER [None]
  - LUNG ADENOCARCINOMA METASTATIC [None]
